FAERS Safety Report 8331418-2 (Version None)
Quarter: 2012Q2

REPORT INFORMATION
  Report Type: 
  Country: None (occurrence: None)
  Receive Date: 20120502
  Receipt Date: 20120417
  Transmission Date: 20120825
  Serious: No
  Sender: FDA-Public Use
  Company Number: US-AMGEN-USASP2011010159

PATIENT
  Age: 36 Year
  Sex: Female

DRUGS (1)
  1. ENBREL [Suspect]
     Indication: RHEUMATOID ARTHRITIS
     Dosage: 50 MG, QWK
     Route: 058
     Dates: start: 20110201, end: 20110221

REACTIONS (10)
  - RHEUMATOID ARTHRITIS [None]
  - INJECTION SITE WARMTH [None]
  - ORAL HERPES [None]
  - INJECTION SITE PAIN [None]
  - INJECTION SITE PRURITUS [None]
  - INJECTION SITE SWELLING [None]
  - MOUTH ULCERATION [None]
  - INJECTION SITE ERYTHEMA [None]
  - URTICARIA [None]
  - RASH PRURITIC [None]
